FAERS Safety Report 7498633-1 (Version None)
Quarter: 2011Q2

REPORT INFORMATION
  Report Type: 
  Country: None (occurrence: None)
  Receive Date: 20110524
  Receipt Date: 20110429
  Transmission Date: 20111010
  Serious: Yes (Other)
  Sender: FDA-Public Use
  Company Number: US-BAYER-2011-033972

PATIENT
  Age: 50 Year
  Sex: Female
  Weight: 95.692 kg

DRUGS (8)
  1. YAZ [Suspect]
     Indication: MENSTRUATION IRREGULAR
  2. IMITREX [Concomitant]
  3. YAZ [Suspect]
     Indication: MIGRAINE
  4. FEXOFENADINE [Concomitant]
  5. FLONASE [Concomitant]
  6. COLACE [Concomitant]
  7. CELEXA [Concomitant]
     Dosage: 20 MG, QD
     Dates: start: 20081120
  8. YAZ [Suspect]
     Indication: ORAL CONTRACEPTION
     Dosage: UNK
     Dates: start: 20080722, end: 20090823

REACTIONS (7)
  - ABDOMINAL PAIN UPPER [None]
  - PAIN [None]
  - CHOLECYSTITIS CHRONIC [None]
  - PROCEDURAL PAIN [None]
  - INJURY [None]
  - CHOLELITHIASIS [None]
  - ABDOMINAL DISTENSION [None]
